FAERS Safety Report 19441728 (Version 1)
Quarter: 2021Q2

REPORT INFORMATION
  Report Type: Spontaneous
  Country: US (occurrence: US)
  Receive Date: 20210621
  Receipt Date: 20210621
  Transmission Date: 20210717
  Serious: Yes (Other)
  Sender: FDA-Public Use
  Company Number: US-JNJFOC-20210622740

PATIENT
  Age: 16 Month
  Sex: Male

DRUGS (1)
  1. AVEENO BABY CONTINUOUS PROTECTION SUNSCREEN BROAD SPECTRUM SPF55 [Suspect]
     Active Substance: AVOBENZONE\HOMOSALATE\OCTISALATE\OCTOCRYLENE\OXYBENZONE
     Indication: PRODUCT USED FOR UNKNOWN INDICATION
     Route: 061

REACTIONS (1)
  - T-cell type acute leukaemia [Unknown]
